FAERS Safety Report 7274365 (Version 4)
Quarter: 2012Q4

REPORT INFORMATION
  Report Type: Report from Study
  Country: JP (occurrence: JP)
  Receive Date: 20100209
  Receipt Date: 20120904
  Transmission Date: 20130627
  Serious: Yes (Death, Life-Threatening, Hospitalization, Other)
  Sender: FDA-Public Use
  Company Number: JP-BRISTOL-MYERS SQUIBB COMPANY-14706568

PATIENT
  Age: 25 Year
  Sex: Male
  Weight: 57 kg

DRUGS (17)
  1. SPRYCEL [Suspect]
     Indication: ACUTE LYMPHOCYTIC LEUKAEMIA
     Route: 048
     Dates: start: 20090416, end: 20090708
  2. MAXIPIME [Suspect]
     Route: 042
     Dates: start: 20090424, end: 20090427
  3. FAROM [Suspect]
     Route: 048
     Dates: start: 20090428, end: 20090501
  4. FOSCAVIR [Suspect]
     Dosage: Form:inj1 df= 10 unit nos
     Route: 041
     Dates: start: 20090710, end: 20090716
  5. ITRIZOLE [Suspect]
     Indication: PROPHYLAXIS
     Dosage: Capsule;400-200mg/day(06Jul-16Jul09)inj.
     Route: 048
     Dates: start: 20090606, end: 20090716
  6. NEORAL [Suspect]
     Indication: PROPHYLAXIS
     Dosage: 09Jul-16Jul09.
125mg/day
Sandimmun:Inj:50mg/dy:09Jul-16Jul09
     Route: 048
     Dates: start: 20090414, end: 20090708
  7. BACTRAMIN [Suspect]
     Indication: ANTIBIOTIC PROPHYLAXIS
     Dosage: 1DF=1tab;800mg/day(02Jul-18Jul09)inj.
     Route: 048
     Dates: start: 20090414, end: 20090716
  8. PREDONINE [Concomitant]
     Indication: ACUTE LYMPHOCYTIC LEUKAEMIA
     Dosage: Form:tabs 55mg 5-18Jun09, 50mg 19-25Jun, 45mg 26-28Jun, 40mg 29Jun-3Jul, 35mg 4-8Jul, 30mg 9-0Jul09
     Route: 048
     Dates: start: 20090605, end: 20090710
  9. DENOSINE [Concomitant]
     Dosage: Form:inj;50mg(18Jul09-28Jul09).
     Route: 042
     Dates: start: 20090630, end: 20090709
  10. CEFTAZIDIME [Concomitant]
     Dosage: Form:inj
     Route: 042
     Dates: start: 20090630, end: 20090710
  11. OMEGACIN [Concomitant]
     Dosage: Form:inj
     Route: 042
     Dates: start: 20090710, end: 20090716
  12. SOLU-MEDROL [Concomitant]
     Indication: ACUTE LYMPHOCYTIC LEUKAEMIA
     Dosage: Form:inj
     Route: 042
     Dates: start: 20090711, end: 20090728
  13. AMBISOME [Concomitant]
     Dosage: Form:inj
     Route: 042
     Dates: start: 20090718, end: 20090728
  14. TAZOCIN [Concomitant]
     Route: 042
     Dates: start: 20090720, end: 20090724
  15. MEROPEN [Concomitant]
     Dosage: Form:inj
     Route: 042
     Dates: start: 20090725, end: 20090728
  16. BENAMBAX [Concomitant]
     Dosage: Form:inj
     Route: 042
     Dates: start: 20090718, end: 20090728
  17. SANDIMMUN [Concomitant]
     Indication: GRAFT VERSUS HOST DISEASE
     Dates: start: 20090709, end: 20090716

REACTIONS (24)
  - Pulmonary haemorrhage [Fatal]
  - Renal impairment [Not Recovered/Not Resolved]
  - White blood cell count decreased [Not Recovered/Not Resolved]
  - Neutrophil count decreased [Not Recovered/Not Resolved]
  - Platelet count decreased [Not Recovered/Not Resolved]
  - Gastrointestinal haemorrhage [Unknown]
  - Anaemia [Not Recovered/Not Resolved]
  - Interstitial lung disease [Not Recovered/Not Resolved]
  - Hepatic function abnormal [Not Recovered/Not Resolved]
  - Pneumonia cytomegaloviral [Not Recovered/Not Resolved]
  - Pneumocystis jiroveci pneumonia [Not Recovered/Not Resolved]
  - Bronchopulmonary aspergillosis [Not Recovered/Not Resolved]
  - Graft versus host disease [Not Recovered/Not Resolved]
  - Disseminated intravascular coagulation [Not Recovered/Not Resolved]
  - Pyrexia [Not Recovered/Not Resolved]
  - Pleural effusion [Recovered/Resolved]
  - Oral herpes [Recovering/Resolving]
  - Generalised oedema [Recovered/Resolved]
  - Pneumonia viral [Not Recovered/Not Resolved]
  - Enterocolitis [Not Recovered/Not Resolved]
  - Pericardial effusion [Recovering/Resolving]
  - Liver function test abnormal [Recovering/Resolving]
  - Eyelid oedema [Recovered/Resolved]
  - Headache [Not Recovered/Not Resolved]
